FAERS Safety Report 4756013-3 (Version None)
Quarter: 2005Q3

REPORT INFORMATION
  Report Type: 
  Country: None (occurrence: None)
  Receive Date: 20050825
  Receipt Date: 20050512
  Transmission Date: 20060218
  Serious: Yes (Other)
  Sender: FDA-Public Use
  Company Number: WAES 0505USA01769

PATIENT
  Age: 84 Year
  Sex: Male

DRUGS (2)
  1. VYTORIN [Suspect]
     Indication: BLOOD CHOLESTEROL INCREASED
     Dosage: 10-20 MG/DAILY/PO
     Route: 048
  2. (THERAPY UNSPECIFIED) [Concomitant]

REACTIONS (1)
  - MYOPATHY [None]
